FAERS Safety Report 15155674 (Version 3)
Quarter: 2018Q3

REPORT INFORMATION
  Report Type: Report from Study
  Country: CO (occurrence: CO)
  Receive Date: 20180717
  Receipt Date: 20180907
  Transmission Date: 20181010
  Serious: Yes (Death, Life-Threatening, Hospitalization, Other)
  Sender: FDA-Public Use
  Company Number: CO-AMGEN-COLSL2018096861

PATIENT
  Age: 51 Year
  Sex: Male

DRUGS (1)
  1. VECTIBIX [Suspect]
     Active Substance: PANITUMUMAB
     Indication: COLORECTAL CANCER METASTATIC
     Dosage: 350 MG, Q2WK
     Route: 042
     Dates: start: 20180131, end: 20180703

REACTIONS (5)
  - Pleural effusion [Not Recovered/Not Resolved]
  - Death [Fatal]
  - Tachycardia [Unknown]
  - Acne [Not Recovered/Not Resolved]
  - Pneumonia [Not Recovered/Not Resolved]

NARRATIVE: CASE EVENT DATE: 2018
